FAERS Safety Report 23339513 (Version 1)
Quarter: 2023Q4

REPORT INFORMATION
  Report Type: Spontaneous
  Country: US (occurrence: None)
  Receive Date: 20231226
  Receipt Date: 20231226
  Transmission Date: 20240109
  Serious: Yes (Other)
  Sender: FDA-Public Use
  Company Number: None

PATIENT
  Age: 71 Year
  Sex: Female
  Weight: 81 kg

DRUGS (12)
  1. FLUORIDEX DAILY DEFENSE SENSITIVITY RELIEF [Suspect]
     Active Substance: POTASSIUM NITRATE\SODIUM FLUORIDE
     Indication: Enamel anomaly
     Dosage: 1 ON TOOTHBRUSH AT BEDTIME ORAL
     Route: 048
     Dates: start: 20231225, end: 20231225
  2. LEVOTHYROXINE [Concomitant]
     Active Substance: LEVOTHYROXINE
  3. HYDRALAZINE [Concomitant]
     Active Substance: HYDRALAZINE HYDROCHLORIDE
  4. DILTIAZEM [Concomitant]
     Active Substance: DILTIAZEM
  5. MELOXICAM [Concomitant]
     Active Substance: MELOXICAM
  6. AREDS2 vitamins [Concomitant]
  7. Centrum for Women 50 [Concomitant]
  8. CALCIUM CITRATE [Concomitant]
     Active Substance: CALCIUM CITRATE
  9. VITAMIN D [Concomitant]
     Active Substance: VITAMIN D NOS
  10. Glucosamine-Chrondroitin [Concomitant]
  11. KRILL OIL [Concomitant]
     Active Substance: DIETARY SUPPLEMENT\KRILL OIL
  12. BILBERRY EXTRACT [Concomitant]

REACTIONS (1)
  - Hypersensitivity [None]

NARRATIVE: CASE EVENT DATE: 20231225
